FAERS Safety Report 7473271-5 (Version None)
Quarter: 2011Q2

REPORT INFORMATION
  Report Type: 
  Country: None (occurrence: None)
  Receive Date: 20110511
  Receipt Date: 20110504
  Transmission Date: 20111010
  Serious: Yes (Death, Other)
  Sender: FDA-Public Use
  Company Number: JP-GENZYME-FLUD-1001119

PATIENT

DRUGS (9)
  1. METHOTREXATE [Concomitant]
     Dosage: 7 MG/M2, QD ON DAYS 3 AND 5
     Route: 042
  2. METHOTREXATE [Concomitant]
     Indication: PROPHYLAXIS AGAINST GRAFT VERSUS HOST DISEASE
     Dosage: 10 MG/M2, QD ON DAY 1
     Route: 042
  3. FLUCONAZOLE [Concomitant]
     Indication: ANTIBIOTIC PROPHYLAXIS
     Route: 065
  4. POLYMYXIN-B-SULFATE [Concomitant]
     Indication: ANTIBIOTIC PROPHYLAXIS
     Route: 065
  5. FLUDARA [Suspect]
     Indication: BONE MARROW CONDITIONING REGIMEN
     Dosage: 30 MG/M2, QD
     Route: 042
  6. ACYCLOVIR [Concomitant]
     Indication: ANTIBIOTIC PROPHYLAXIS
     Route: 065
  7. SULFAMETHOXAZOLE W [Concomitant]
     Indication: ANTIFUNGAL PROPHYLAXIS
     Route: 065
  8. CYCLOSPORINE [Concomitant]
     Indication: PROPHYLAXIS AGAINST GRAFT VERSUS HOST DISEASE
     Dosage: 3 MG/KG, QD DIVIDED INTO TWO DOSES QD FROM DAY -1
     Route: 065
  9. GRANULOCYTE COLONY STIMULATING FACTOR [Concomitant]
     Indication: NEUTROPHIL COUNT
     Dosage: UNK, FROM DAY 1 OR FROM DAY 5
     Route: 042

REACTIONS (25)
  - PNEUMONIA CYTOMEGALOVIRAL [None]
  - FEBRILE NEUTROPENIA [None]
  - PNEUMOCYSTIS JIROVECI PNEUMONIA [None]
  - ACUTE GRAFT VERSUS HOST DISEASE [None]
  - SUBDURAL HAEMATOMA [None]
  - HEPATOTOXICITY [None]
  - CYTOMEGALOVIRUS COLITIS [None]
  - HERPES SIMPLEX [None]
  - PNEUMONIA [None]
  - DIARRHOEA [None]
  - PANCREATIC DISORDER [None]
  - NAUSEA [None]
  - CHRONIC GRAFT VERSUS HOST DISEASE [None]
  - CYTOMEGALOVIRUS TEST POSITIVE [None]
  - TRANSPLANT REJECTION [None]
  - NERVOUS SYSTEM DISORDER [None]
  - PULMONARY TOXICITY [None]
  - PNEUMONIA BACTERIAL [None]
  - NEPHROPATHY TOXIC [None]
  - BACTERAEMIA [None]
  - MUCOSAL INFLAMMATION [None]
  - THROMBOTIC MICROANGIOPATHY [None]
  - ENGRAFTMENT SYNDROME [None]
  - CYSTITIS HAEMORRHAGIC [None]
  - HISTIOCYTOSIS HAEMATOPHAGIC [None]
